FAERS Safety Report 25945119 (Version 1)
Quarter: 2025Q4

REPORT INFORMATION
  Report Type: Spontaneous
  Country: US (occurrence: US)
  Receive Date: 20251021
  Receipt Date: 20251021
  Transmission Date: 20260117
  Serious: Yes (Other)
  Sender: BRISTOL-MYERS SQUIBB COMPANY
  Company Number: US-BRISTOL-MYERS SQUIBB COMPANY-2025-142220

PATIENT
  Age: 77 Year
  Sex: Female
  Weight: 79.83 kg

DRUGS (2)
  1. POMALYST [Suspect]
     Active Substance: POMALIDOMIDE
     Indication: Plasma cell myeloma in remission
     Dosage: 2MG (1 CAPSULE) ORALLY DAILY FOR 21 DAYS ON THEN 7 DAYS OFF
  2. POMALYST [Suspect]
     Active Substance: POMALIDOMIDE

REACTIONS (6)
  - Eye pain [Recovering/Resolving]
  - Dizziness [Recovering/Resolving]
  - Tremor [Recovering/Resolving]
  - Varicose vein [Recovering/Resolving]
  - Visual impairment [Recovering/Resolving]
  - Thrombosis [Recovering/Resolving]
